FAERS Safety Report 11980716 (Version 1)
Quarter: 2016Q1

REPORT INFORMATION
  Report Type: Spontaneous
  Country: CZ (occurrence: CZ)
  Receive Date: 20160129
  Receipt Date: 20160129
  Transmission Date: 20160526
  Serious: Yes (Other)
  Sender: FDA-Public Use
  Company Number: CZ-APOPHARMA-2016AP005962

PATIENT
  Age: 60 Year
  Sex: Male

DRUGS (2)
  1. FERRIPROX [Suspect]
     Active Substance: DEFERIPRONE
     Indication: MYELODYSPLASTIC SYNDROME
     Dosage: UNK
     Route: 065
     Dates: start: 200707, end: 200804
  2. FERRIPROX [Suspect]
     Active Substance: DEFERIPRONE
     Indication: IRON OVERLOAD

REACTIONS (3)
  - Neutropenia [Unknown]
  - Thrombocytopenia [Unknown]
  - Leukopenia [Unknown]
